FAERS Safety Report 14169052 (Version 6)
Quarter: 2020Q4

REPORT INFORMATION
  Report Type: Spontaneous
  Country: US (occurrence: US)
  Receive Date: 20171108
  Receipt Date: 20201218
  Transmission Date: 20210113
  Serious: Yes (Other)
  Sender: FDA-Public Use
  Company Number: US-PFIZER INC-2017480435

PATIENT
  Age: 77 Year
  Sex: Female
  Weight: 63.05 kg

DRUGS (4)
  1. LISINOPRIL HCTZ [Concomitant]
     Active Substance: HYDROCHLOROTHIAZIDE\LISINOPRIL
     Indication: BLOOD PRESSURE INCREASED
     Dosage: 20 MG, 2X/DAY (HALF A TABLET TWICE DAILY, ONCE IN THE MORNING AND ONCE IN THE EVENING)
  2. LYRICA [Suspect]
     Active Substance: PREGABALIN
     Indication: FIBROMYALGIA
     Dosage: 75 MG, 3X/DAY (THREE TIMES A DAY)
  3. LYRICA [Suspect]
     Active Substance: PREGABALIN
     Dosage: 75 MG, 2X/DAY (TWICE A DAY BY MOUTH)
     Route: 048
  4. HYDROXYCHLOROQUINE [Concomitant]
     Active Substance: HYDROXYCHLOROQUINE
     Dosage: 200 MG, 1X/DAY

REACTIONS (5)
  - Drug ineffective [Unknown]
  - Rheumatoid arthritis [Unknown]
  - Rash [Unknown]
  - Pain [Unknown]
  - Somnolence [Unknown]
